FAERS Safety Report 8589010-0 (Version None)
Quarter: 2012Q3

REPORT INFORMATION
  Report Type: 
  Country: None (occurrence: None)
  Receive Date: 20120813
  Receipt Date: 20120801
  Transmission Date: 20120928
  Serious: Yes (Other)
  Sender: FDA-Public Use
  Company Number: AU-SANOFI-AVENTIS-2012SA056061

PATIENT
  Age: 78 Year
  Sex: Male
  Weight: 69 kg

DRUGS (12)
  1. CABAZITAXEL [Suspect]
     Indication: PROSTATE CANCER METASTATIC
     Route: 042
     Dates: start: 20120314, end: 20120314
  2. FISH OIL [Concomitant]
     Route: 048
     Dates: start: 20050101
  3. PERINDOPRIL ERBUMINE [Concomitant]
     Route: 048
     Dates: start: 20000101
  4. PREDNISONE TAB [Suspect]
     Indication: PROSTATE CANCER METASTATIC
     Route: 065
     Dates: start: 20120314
  5. COLOXYL WITH SENNA [Concomitant]
     Route: 048
     Dates: start: 20110101
  6. ATORVASTATIN [Concomitant]
     Route: 048
     Dates: start: 20000101
  7. MAXOLON [Concomitant]
     Route: 048
     Dates: start: 20120314
  8. CABAZITAXEL [Suspect]
     Route: 042
     Dates: start: 20120627, end: 20120627
  9. CALCIUM CARBONATE [Concomitant]
     Route: 048
     Dates: start: 20050101
  10. SELENIUM [Concomitant]
     Route: 048
     Dates: start: 20000101
  11. GLUCOSAMINE [Concomitant]
     Route: 048
     Dates: start: 20050101
  12. ZOMETA [Concomitant]
     Route: 041
     Dates: start: 20111221

REACTIONS (1)
  - CATARACT [None]
